FAERS Safety Report 5778356-7 (Version None)
Quarter: 2008Q2

REPORT INFORMATION
  Report Type: 
  Country: None (occurrence: None)
  Receive Date: 20080617
  Receipt Date: 20080605
  Transmission Date: 20081010
  Serious: Yes (Death, Other)
  Sender: FDA-Public Use
  Company Number: 2008AL006535

PATIENT
  Age: 70 Year
  Sex: Male
  Weight: 79.3795 kg

DRUGS (3)
  1. DIGOXIN [Suspect]
     Indication: ARRHYTHMIA
     Dosage: 0.125MG DAILY PO
     Route: 048
  2. ASPIRIN [Concomitant]
  3. DIOVAN [Concomitant]

REACTIONS (4)
  - ASTHENIA [None]
  - CARDIOMYOPATHY [None]
  - NAUSEA [None]
  - VENTRICULAR FIBRILLATION [None]
